FAERS Safety Report 8766673 (Version 1)
Quarter: 2012Q4

REPORT INFORMATION
  Report Type: 
  Country: PT (occurrence: PT)
  Receive Date: 20120904
  Receipt Date: 20120904
  Transmission Date: 20130627
  Serious: Yes (Hospitalization)
  Sender: FDA-Public Use
  Company Number: PT-ROXANE LABORATORIES, INC.-2012-RO-01771RO

PATIENT
  Age: 75 Year
  Sex: Female

DRUGS (1)
  1. PREDNISONE [Suspect]
     Indication: BRONCHOPNEUMONIA
     Dosage: 40 mg

REACTIONS (6)
  - Elevated mood [Recovered/Resolved]
  - Irritability [Recovered/Resolved]
  - Pressure of speech [Recovered/Resolved]
  - Insomnia [Recovered/Resolved]
  - Jealous delusion [Recovered/Resolved]
  - Delusion of grandeur [Recovered/Resolved]
